FAERS Safety Report 20523993 (Version 1)
Quarter: 2022Q1

REPORT INFORMATION
  Report Type: Spontaneous
  Country: GB (occurrence: GB)
  Receive Date: 20220228
  Receipt Date: 20220228
  Transmission Date: 20220423
  Serious: Yes (Disabling)
  Sender: FDA-Public Use
  Company Number: GB-MHRA-MED-202202131527161090-DYW0D

PATIENT
  Age: 32 Year
  Sex: Male
  Weight: 105 kg

DRUGS (1)
  1. ARIPIPRAZOLE [Suspect]
     Active Substance: ARIPIPRAZOLE
     Indication: Schizophrenia
     Dosage: 20 MILLIGRAM, ONCE A DAY
     Route: 065
     Dates: start: 20160101

REACTIONS (2)
  - Impulsive behaviour [Not Recovered/Not Resolved]
  - Hyperphagia [Unknown]

NARRATIVE: CASE EVENT DATE: 20160101
